FAERS Safety Report 25633060 (Version 1)
Quarter: 2025Q3

REPORT INFORMATION
  Report Type: Spontaneous
  Country: US (occurrence: None)
  Receive Date: 20250731
  Receipt Date: 20250731
  Transmission Date: 20251020
  Serious: Yes (Hospitalization, Other)
  Sender: FDA-CTU
  Company Number: None

PATIENT
  Age: 47 Year
  Sex: Female
  Weight: 64.8 kg

DRUGS (1)
  1. VYLEESI [Suspect]
     Active Substance: BREMELANOTIDE ACETATE
     Indication: Libido decreased
     Route: 050
     Dates: start: 20250606, end: 20250720

REACTIONS (12)
  - Swelling face [None]
  - Flushing [None]
  - Feeling hot [None]
  - Pyrexia [None]
  - Nausea [None]
  - Abdominal pain upper [None]
  - Headache [None]
  - Restless legs syndrome [None]
  - Fatigue [None]
  - Tremor [None]
  - Abdominal distension [None]
  - Abdominal pain upper [None]

NARRATIVE: CASE EVENT DATE: 20250720
